FAERS Safety Report 7942020-6 (Version None)
Quarter: 2011Q4

REPORT INFORMATION
  Report Type: 
  Country: None (occurrence: None)
  Receive Date: 20111122
  Receipt Date: 20111111
  Transmission Date: 20120403
  Serious: Yes (Hospitalization)
  Sender: FDA-Public Use
  Company Number: 2011AP002695

PATIENT
  Age: 52 Year
  Sex: Male

DRUGS (8)
  1. AMLODIPINE [Concomitant]
  2. ETORICOXIB (ETORICOXIB) [Concomitant]
  3. FOLIC ACID [Concomitant]
  4. PERINDOPRIL ERBUMINE [Suspect]
     Indication: HYPERTENSION
     Dosage: 4 MG;PO 8 MG;QD;PO
     Route: 048
     Dates: end: 20110801
  5. PERINDOPRIL ERBUMINE [Suspect]
     Indication: HYPERTENSION
     Dosage: 4 MG;PO 8 MG;QD;PO
     Route: 048
     Dates: start: 20110817
  6. ACETAMINOPHEN W/ CODEINE [Concomitant]
  7. METHOTREXATE [Suspect]
     Indication: ARTHRITIS
     Dosage: 20 MG;PO;QW 25 MG;SC;QW
     Route: 048
     Dates: end: 20110401
  8. METHOTREXATE [Suspect]
     Indication: ARTHRITIS
     Dosage: 20 MG;PO;QW 25 MG;SC;QW
     Route: 048
     Dates: start: 20110501, end: 20111103

REACTIONS (2)
  - ABDOMINAL PAIN [None]
  - PANCREATITIS [None]
